FAERS Safety Report 7206187-X (Version None)
Quarter: 2010Q4

REPORT INFORMATION
  Report Type: 
  Country: None (occurrence: None)
  Receive Date: 20101229
  Receipt Date: 20101229
  Transmission Date: 20110411
  Serious: No
  Sender: FDA-Public Use
  Company Number: None

PATIENT

DRUGS (1)
  1. PYRIDOXINE [Suspect]
     Indication: BLOOD DISORDER
     Dosage: 600 MGS DAILY DAILY
     Dates: start: 20050801, end: 20051211

REACTIONS (2)
  - NEUROPATHY PERIPHERAL [None]
  - PARKINSON'S DISEASE [None]
